FAERS Safety Report 23078876 (Version 2)
Quarter: 2023Q4

REPORT INFORMATION
  Report Type: Spontaneous
  Country: DE (occurrence: DE)
  Receive Date: 20231018
  Receipt Date: 20231128
  Transmission Date: 20240109
  Serious: Yes (Life-Threatening, Hospitalization, Other)
  Sender: FDA-Public Use
  Company Number: None

PATIENT
  Age: 79 Year
  Sex: Male
  Weight: 60 kg

DRUGS (4)
  1. ELIQUIS [Suspect]
     Active Substance: APIXABAN
     Indication: Deep vein thrombosis
     Route: 048
     Dates: start: 202007
  2. ELIQUIS [Suspect]
     Active Substance: APIXABAN
     Indication: Pulmonary embolism
  3. RAMIPRIL [Concomitant]
     Active Substance: RAMIPRIL
     Indication: Hypertension
     Dates: start: 202007
  4. TAMSULOSIN [Concomitant]
     Active Substance: TAMSULOSIN
     Indication: Benign prostatic hyperplasia
     Dates: start: 202006

REACTIONS (5)
  - Blood disorder [Not Recovered/Not Resolved]
  - Blood loss anaemia [Not Recovered/Not Resolved]
  - Intra-abdominal haemorrhage [Not Recovered/Not Resolved]
  - Coagulopathy [Not Recovered/Not Resolved]
  - Shock haemorrhagic [Unknown]

NARRATIVE: CASE EVENT DATE: 20230901
